FAERS Safety Report 9524438 (Version 1)
Quarter: 2013Q3

REPORT INFORMATION
  Report Type: Spontaneous
  Country: GB (occurrence: None)
  Receive Date: 20130912
  Receipt Date: 20130912
  Transmission Date: 20140515
  Serious: Yes (Hospitalization, Other)
  Sender: FDA-Public Use
  Company Number: AUR-APL-2013-07393

PATIENT
  Sex: Female

DRUGS (1)
  1. CIPROFLOXACIN (CIPROFLOXACIN) [Suspect]
     Indication: ANAL ABSCESS
     Route: 048
     Dates: end: 20120816

REACTIONS (3)
  - Treatment failure [None]
  - Medication error [None]
  - Drug dispensing error [None]
